FAERS Safety Report 12835475 (Version 1)
Quarter: 2016Q4

REPORT INFORMATION
  Report Type: Spontaneous
  Country: US (occurrence: US)
  Receive Date: 20161011
  Receipt Date: 20161011
  Transmission Date: 20170207
  Serious: No
  Sender: FDA-Public Use
  Company Number: US-TEVA-676195USA

PATIENT
  Age: 41 Year
  Sex: Female

DRUGS (1)
  1. ZECUITY [Suspect]
     Active Substance: SUMATRIPTAN SUCCINATE
     Route: 062
     Dates: start: 2016

REACTIONS (3)
  - Application site erythema [Recovered/Resolved]
  - Application site exfoliation [Not Recovered/Not Resolved]
  - Application site paraesthesia [Recovered/Resolved]

NARRATIVE: CASE EVENT DATE: 201606
